FAERS Safety Report 7776250-3 (Version None)
Quarter: 2011Q3

REPORT INFORMATION
  Report Type: 
  Country: None (occurrence: None)
  Receive Date: 20110921
  Receipt Date: 20110913
  Transmission Date: 20111222
  Serious: Yes (Life-Threatening, Hospitalization)
  Sender: FDA-Public Use
  Company Number: WAES 1107USA01535

PATIENT
  Age: 67 Year
  Sex: Male

DRUGS (8)
  1. RAMIPRIL [Concomitant]
  2. METFORMIN HCL [Concomitant]
  3. ACTRAPHANE MC [Concomitant]
  4. VYTORIN [Suspect]
     Dosage: 10-40 MG/DAILY PO
     Route: 048
     Dates: start: 20090401
  5. METOPROLOL SUCCINATE [Concomitant]
  6. PLETAL [Concomitant]
  7. TORSEMIDE [Concomitant]
  8. FALITHROM [Concomitant]

REACTIONS (8)
  - DIABETIC FOOT [None]
  - BLOOD SODIUM INCREASED [None]
  - RED BLOOD CELL COUNT DECREASED [None]
  - HAEMATOCRIT DECREASED [None]
  - BLOOD FIBRINOGEN INCREASED [None]
  - GASTROINTESTINAL CARCINOMA [None]
  - ACTIVATED PARTIAL THROMBOPLASTIN TIME PROLONGED [None]
  - HAEMOGLOBIN DECREASED [None]
